FAERS Safety Report 6692089-4 (Version None)
Quarter: 2010Q2

REPORT INFORMATION
  Report Type: 
  Country: None (occurrence: None)
  Receive Date: 20100422
  Receipt Date: 20090528
  Transmission Date: 20101027
  Serious: No
  Sender: FDA-Public Use
  Company Number: US-ASTRAZENECA-2006UW01305

PATIENT
  Age: 82 Year
  Sex: Female
  Weight: 61.2 kg

DRUGS (9)
  1. TOPROL-XL [Suspect]
     Indication: HYPERTENSION
     Route: 048
     Dates: start: 20030101
  2. TOPROL-XL [Suspect]
     Route: 048
     Dates: start: 20060101
  3. HYDROCHLOROTHIAZIDE [Concomitant]
  4. CLARINEX [Concomitant]
  5. K-DUR [Concomitant]
  6. VITAMIN C [Concomitant]
  7. CALTRATE + D [Concomitant]
  8. ACIPHEX [Concomitant]
  9. POTASSIUM CHLORIDE [Concomitant]

REACTIONS (6)
  - ABDOMINAL DISTENSION [None]
  - ABDOMINAL PAIN [None]
  - DRUG INEFFECTIVE [None]
  - FATIGUE [None]
  - FLATULENCE [None]
  - VISION BLURRED [None]
